FAERS Safety Report 4820388-7 (Version None)
Quarter: 2005Q4

REPORT INFORMATION
  Report Type: 
  Country: None (occurrence: None)
  Receive Date: 20051014
  Receipt Date: 20050906
  Transmission Date: 20060501
  Serious: No
  Sender: FDA-Public Use
  Company Number: 2005SP002658

PATIENT
  Age: 53 Year
  Sex: Female
  Weight: 103.4201 kg

DRUGS (16)
  1. LUNESTA [Suspect]
     Indication: INSOMNIA
     Dosage: 2-3 MG;HS;ORAL
     Route: 048
     Dates: start: 20050902, end: 20050905
  2. LUNESTA [Suspect]
     Indication: INSOMNIA
     Dosage: 2-3 MG;HS;ORAL
     Route: 048
     Dates: start: 20050906
  3. ELAVIL [Concomitant]
  4. MIDRIN [Concomitant]
  5. VICODIN [Concomitant]
  6. PIZANIDINE [Concomitant]
  7. GABAPENTIN [Concomitant]
  8. OMEPRAZOLE [Concomitant]
  9. XANAX [Concomitant]
  10. TRICOR [Concomitant]
  11. DYAZIDE [Concomitant]
  12. FLEXERIL [Concomitant]
  13. ASPIRIN [Concomitant]
  14. WELLBUTRIN [Concomitant]
  15. VERAPAMIL [Concomitant]
  16. CELEBREX [Concomitant]

REACTIONS (1)
  - INSOMNIA [None]
